FAERS Safety Report 6391436-0 (Version None)
Quarter: 2009Q4

REPORT INFORMATION
  Report Type: 
  Country: None (occurrence: None)
  Receive Date: 20091007
  Receipt Date: 20090923
  Transmission Date: 20100525
  Serious: Yes (Hospitalization)
  Sender: FDA-Public Use
  Company Number: NO-PFIZER INC-2009272717

PATIENT
  Age: 79 Year

DRUGS (6)
  1. CHAMPIX [Suspect]
     Indication: SMOKING CESSATION THERAPY
     Dosage: UNK
     Dates: start: 20090824, end: 20090909
  2. LIPITOR [Concomitant]
     Indication: HYPERCHOLESTEROLAEMIA
     Dosage: 10 MG, 1X/DAY
  3. CEPALUX [Concomitant]
     Indication: BENIGN PROSTATIC HYPERPLASIA
     Dosage: 0.4 MG, 1X/DAY
  4. FOLIC ACID [Concomitant]
     Indication: FOLATE DEFICIENCY
     Dosage: 1 MG, 2X/DAY
  5. COZAAR [Concomitant]
     Dosage: 50 MG, 1X/DAY
  6. ALBYL-E [Concomitant]
     Indication: CEREBRAL INFARCTION
     Dosage: 75 MG, 1X/DAY

REACTIONS (2)
  - DEHYDRATION [None]
  - DIARRHOEA [None]
